FAERS Safety Report 12256488 (Version 1)
Quarter: 2016Q2

REPORT INFORMATION
  Report Type: Spontaneous
  Country: US (occurrence: None)
  Receive Date: 20160411
  Receipt Date: 20160411
  Transmission Date: 20160815
  Serious: Yes (Life-Threatening, Hospitalization, Disabling, Other)
  Sender: FDA-Public Use
  Company Number: None

PATIENT
  Age: 24 Year
  Sex: Male
  Weight: 63.5 kg

DRUGS (14)
  1. PULMOZYME [Concomitant]
     Active Substance: DORNASE ALFA
  2. DULOXETINE, 60 MG CITRON PHARMACEUTICALS [Suspect]
     Active Substance: DULOXETINE HYDROCHLORIDE
     Indication: MUSCULOSKELETAL PAIN
     Route: 048
  3. AZITHROMYCIN ANHYDROUS. [Concomitant]
     Active Substance: AZITHROMYCIN ANHYDROUS
  4. BETHKIS [Concomitant]
     Active Substance: TOBRAMYCIN
  5. VITAMIN D [Concomitant]
     Active Substance: CHOLECALCIFEROL
  6. HYPERSAL [Concomitant]
  7. CREON 24 [Concomitant]
     Active Substance: AMYLASE\LIPASE\PROTEASE
  8. ORKAMBI [Concomitant]
     Active Substance: IVACAFTOR\LUMACAFTOR
  9. LOPERAMIDE [Concomitant]
     Active Substance: LOPERAMIDE
  10. ALLEGRA-D [Concomitant]
     Active Substance: FEXOFENADINE\PSEUDOEPHEDRINE
  11. ESOMEPRAZOLE [Concomitant]
     Active Substance: ESOMEPRAZOLE
  12. IRON SUPPLEMENTS [Concomitant]
     Active Substance: IRON
  13. DULOXETINE, 60 MG CITRON PHARMACEUTICALS [Suspect]
     Active Substance: DULOXETINE HYDROCHLORIDE
     Indication: FIBROMYALGIA
     Route: 048
  14. COCONUT OIL [Concomitant]
     Active Substance: COCONUT OIL

REACTIONS (6)
  - Blindness transient [None]
  - Serotonin syndrome [None]
  - Loss of consciousness [None]
  - Toxic shock syndrome [None]
  - Presyncope [None]
  - Deafness [None]

NARRATIVE: CASE EVENT DATE: 20160406
